FAERS Safety Report 6313351-0 (Version None)
Quarter: 2009Q3

REPORT INFORMATION
  Report Type: 
  Country: None (occurrence: None)
  Receive Date: 20090818
  Receipt Date: 20090810
  Transmission Date: 20100115
  Serious: Yes (Other)
  Sender: FDA-Public Use
  Company Number: KR-GENENTECH-288522

PATIENT
  Age: 53 Year
  Sex: Female

DRUGS (2)
  1. BEVACIZUMAB [Suspect]
     Indication: CHOROIDAL NEOVASCULARISATION
     Dosage: 1.25 MG, UNK
     Route: 031
  2. VERTEPORFIN [Concomitant]
     Indication: CHOROIDAL NEOVASCULARISATION
     Dosage: UNK

REACTIONS (1)
  - RETINAL DETACHMENT [None]
